FAERS Safety Report 9793048 (Version 1)
Quarter: 2013Q4

REPORT INFORMATION
  Report Type: Spontaneous
  Country: None (occurrence: None)
  Receive Date: 20131231
  Receipt Date: 20131231
  Transmission Date: 20140711
  Serious: Yes (Other)
  Sender: FDA-Public Use
  Company Number: None

PATIENT
  Age: 75 Year
  Sex: Male
  Weight: 95.26 kg

DRUGS (1)
  1. TAZTIA XT [Suspect]
     Dosage: 1 DAILY
     Route: 048
     Dates: start: 20131001, end: 20131216

REACTIONS (2)
  - Dizziness [None]
  - Blood glucose increased [None]
